FAERS Safety Report 21706310 (Version 1)
Quarter: 2022Q4

REPORT INFORMATION
  Report Type: Spontaneous
  Country: JP (occurrence: JP)
  Receive Date: 20221209
  Receipt Date: 20221209
  Transmission Date: 20230113
  Serious: Yes (Other)
  Sender: FDA-Public Use
  Company Number: JP-SUN PHARMACEUTICAL INDUSTRIES LTD-2022RR-367794

PATIENT
  Age: 86 Year
  Sex: Female

DRUGS (5)
  1. RISEDRONATE SODIUM [Suspect]
     Active Substance: RISEDRONATE SODIUM
     Indication: Osteoporosis
     Dosage: 17.5 MILLIGRAM, WEEKLY
     Route: 048
     Dates: start: 2005, end: 2015
  2. TERIPARATIDE [Suspect]
     Active Substance: TERIPARATIDE
     Indication: Osteoporosis
     Dosage: 20 MICROGRAM, DAILY, FOR 11 MONTHS, IMJECTION
     Route: 065
     Dates: start: 2015
  3. TERIPARATIDE [Suspect]
     Active Substance: TERIPARATIDE
     Dosage: 20 MICROGRAM, DAILY, FOR 13 MONTHS
     Route: 065
  4. DENOSUMAB [Suspect]
     Active Substance: DENOSUMAB
     Indication: Osteoporosis
     Dosage: 60 MILLIGRAM, 6-MONTHLY
     Route: 058
     Dates: start: 201601
  5. ELDECALCITOL [Suspect]
     Active Substance: ELDECALCITOL
     Indication: Postoperative care
     Dosage: UNK
     Route: 048

REACTIONS (2)
  - Ulna fracture [Recovering/Resolving]
  - Drug ineffective [Unknown]
